FAERS Safety Report 8001971-7 (Version None)
Quarter: 2011Q4

REPORT INFORMATION
  Report Type: 
  Country: None (occurrence: None)
  Receive Date: 20111222
  Receipt Date: 20111215
  Transmission Date: 20120403
  Serious: Yes (Hospitalization, Other)
  Sender: FDA-Public Use
  Company Number: US-CELGENEUS-163-21880-11071464

PATIENT
  Sex: Male

DRUGS (16)
  1. CYMBALTA [Concomitant]
     Route: 065
  2. SEROQUEL [Concomitant]
     Route: 065
  3. REVLIMID [Suspect]
     Dosage: 5 MILLIGRAM
     Route: 048
  4. REVLIMID [Suspect]
     Indication: MULTIPLE MYELOMA
     Dosage: 15 MILLIGRAM
     Route: 048
     Dates: start: 20100202
  5. LOMOTIL [Concomitant]
     Route: 065
  6. VALTREX [Concomitant]
     Route: 065
  7. ZOMETA [Concomitant]
     Route: 065
     Dates: start: 20100202, end: 20101012
  8. NEURONTIN [Concomitant]
     Route: 065
  9. REVLIMID [Suspect]
     Dosage: 15 MILLIGRAM
     Route: 048
     Dates: start: 20110201
  10. LAMICTAL [Concomitant]
     Route: 065
  11. DECADRON [Concomitant]
     Dosage: 20 MILLIGRAM
     Route: 065
     Dates: start: 20100202, end: 20101012
  12. REVLIMID [Suspect]
     Dosage: 10 MILLIGRAM
     Route: 048
     Dates: start: 20100501
  13. MARINOL [Concomitant]
     Route: 065
  14. OXYCODONE HCL [Concomitant]
     Route: 065
  15. OXYCONTIN [Concomitant]
     Route: 065
  16. PROTONIX [Concomitant]
     Route: 065

REACTIONS (2)
  - OSTEOARTHRITIS [None]
  - THROMBOPHLEBITIS SUPERFICIAL [None]
